FAERS Safety Report 6063083-1 (Version None)
Quarter: 2009Q1

REPORT INFORMATION
  Report Type: 
  Country: None (occurrence: None)
  Receive Date: 20090203
  Receipt Date: 20090130
  Transmission Date: 20090719
  Serious: Yes (Death, Hospitalization)
  Sender: FDA-Public Use
  Company Number: PHHY2009GB03381

PATIENT
  Age: 91 Year
  Sex: Male

DRUGS (3)
  1. ZOMETA [Suspect]
     Indication: METASTASES TO BONE
     Dosage: UNK
     Dates: start: 20090101
  2. RADIOTHERAPY [Concomitant]
  3. HORMONES NOS [Suspect]

REACTIONS (2)
  - MALAISE [None]
  - SEPSIS [None]
